FAERS Safety Report 6319404-5 (Version None)
Quarter: 2009Q3

REPORT INFORMATION
  Report Type: 
  Country: None (occurrence: None)
  Receive Date: 20090822
  Receipt Date: 20080826
  Transmission Date: 20100115
  Serious: No
  Sender: FDA-Public Use
  Company Number: US-ABBOTT-08P-163-0472654-00

PATIENT
  Sex: Female
  Weight: 86.26 kg

DRUGS (4)
  1. NIASPAN [Suspect]
     Indication: DRUG USE FOR UNKNOWN INDICATION
     Dates: start: 20080811, end: 20080826
  2. FENOFIBRATE [Concomitant]
     Indication: DRUG USE FOR UNKNOWN INDICATION
  3. UNKNOWN [Concomitant]
     Indication: RESTLESS LEGS SYNDROME
  4. UNKNOWN [Concomitant]
     Indication: REFLUX OESOPHAGITIS

REACTIONS (2)
  - FLUSHING [None]
  - VOMITING [None]
